FAERS Safety Report 9055806 (Version 1)
Quarter: 2013Q1

REPORT INFORMATION
  Report Type: Spontaneous
  Country: HU (occurrence: HU)
  Receive Date: 20130206
  Receipt Date: 20130206
  Transmission Date: 20140127
  Serious: Yes (Other)
  Sender: FDA-Public Use
  Company Number: HU-009507513-1302HUN000737

PATIENT
  Age: 37 Year
  Sex: Female

DRUGS (2)
  1. ZOELY [Suspect]
     Indication: ORAL CONTRACEPTION
     Dosage: 1 DF, QD
     Route: 048
     Dates: start: 20121130, end: 20121215
  2. ASPIRIN PROTECT [Suspect]
     Indication: THROMBOSIS PROPHYLAXIS
     Dosage: 100 MG, QD
     Route: 048
     Dates: start: 20121130, end: 20121230

REACTIONS (1)
  - Thrombophlebitis superficial [Recovered/Resolved]
